FAERS Safety Report 9552219 (Version 1)
Quarter: 2013Q3

REPORT INFORMATION
  Report Type: Spontaneous
  Country: US (occurrence: None)
  Receive Date: 20130724
  Receipt Date: 20130724
  Transmission Date: 20140515
  Serious: Yes (Other)
  Sender: FDA-Public Use
  Company Number: PHEH2012US012650

PATIENT
  Sex: Female
  Weight: 130 kg

DRUGS (9)
  1. RECLAST [Suspect]
     Indication: OSTEOPOROSIS POSTMENOPAUSAL
     Dosage: 5 MG, ONCE ANNUALLY, INTRAVENOUS
     Route: 042
     Dates: start: 20080924
  2. SYNTHROID (LEVOTHYROXINE SODIUM) [Concomitant]
  3. NEURONTIN (GABAPENTIN) [Concomitant]
  4. LASIX (FUROSEMIDE) [Concomitant]
  5. AMLODIPINE (AMLODIPINE) [Concomitant]
  6. CALCIUM WITH VITAMIN D (CALCIUM PHOSPHATE, CALCIUM SODIUM LACTATE, ERGOCALCIFEROL) [Concomitant]
  7. ACE INHIBITOR NOS (NO INGREDIENTS/SUBSTANCES) [Concomitant]
  8. DIURETICS (NO INGREDIENTS/SUBSTANCES) [Concomitant]
  9. VITAMIN D3 (COLECALCIFEROL) [Concomitant]

REACTIONS (2)
  - Renal impairment [None]
  - Creatinine renal clearance decreased [None]
